FAERS Safety Report 23797637 (Version 1)
Quarter: 2024Q2

REPORT INFORMATION
  Report Type: Spontaneous
  Country: US (occurrence: US)
  Receive Date: 20240430
  Receipt Date: 20240430
  Transmission Date: 20240716
  Serious: Yes (Death, Life-Threatening, Hospitalization, Other)
  Sender: FDA-Public Use
  Company Number: US-CELLTRION INC.-2024US009777

PATIENT

DRUGS (3)
  1. BEVACIZUMAB [Suspect]
     Active Substance: BEVACIZUMAB
     Indication: Ovarian clear cell carcinoma
     Dosage: INTENDED TREATMENT REGIMEN: 15 MILLIGRAM/KILOGRAM, EVERY 3 WEEKS
  2. CYCLOPHOSPHAMIDE [Suspect]
     Active Substance: CYCLOPHOSPHAMIDE
     Indication: Ovarian clear cell carcinoma
     Dosage: INTENDED TREATMENT REGIMEN:50 MILLIGRAM, DAILY
     Route: 048
  3. PEMBROLIZUMAB [Suspect]
     Active Substance: PEMBROLIZUMAB
     Indication: Ovarian clear cell carcinoma
     Dosage: INTENDED TREATMENT REGIMEN: 200 MILLIGRAM, EVERY 3 WEEKS

REACTIONS (3)
  - Autoimmune hepatitis [Fatal]
  - Myocarditis [Unknown]
  - Therapy partial responder [Unknown]
